FAERS Safety Report 19678848 (Version 1)
Quarter: 2021Q3

REPORT INFORMATION
  Report Type: Spontaneous
  Country: US (occurrence: US)
  Receive Date: 20210810
  Receipt Date: 20210810
  Transmission Date: 20211014
  Serious: Yes (Life-Threatening, Disabling)
  Sender: FDA-Public Use
  Company Number: None

PATIENT

DRUGS (1)
  1. FERAHEME [Suspect]
     Active Substance: FERUMOXYTOL NON-STOICHIOMETRIC MAGNETITE
     Indication: ANAEMIA
     Dates: start: 20200515

REACTIONS (6)
  - Infusion related reaction [None]
  - Erythema [None]
  - Dyspnoea [None]
  - Palpitations [None]
  - Photopsia [None]
  - Loss of consciousness [None]

NARRATIVE: CASE EVENT DATE: 20200515
